FAERS Safety Report 24788392 (Version 4)
Quarter: 2025Q1

REPORT INFORMATION
  Report Type: Spontaneous
  Country: US (occurrence: US)
  Receive Date: 20241230
  Receipt Date: 20250304
  Transmission Date: 20250409
  Serious: Yes (Hospitalization, Other)
  Sender: VIIV
  Company Number: US-VIIV HEALTHCARE ULC-US2024162890

PATIENT

DRUGS (1)
  1. JULUCA [Suspect]
     Active Substance: DOLUTEGRAVIR SODIUM\RILPIVIRINE HYDROCHLORIDE
     Indication: Product used for unknown indication
     Dosage: UNK UNK, QD, 50-25 MG
     Route: 048
     Dates: start: 201401

REACTIONS (2)
  - Salivary gland cancer [Recovered/Resolved]
  - Tongue cancer recurrent [Recovering/Resolving]
